FAERS Safety Report 16351590 (Version 2)
Quarter: 2019Q3

REPORT INFORMATION
  Report Type: Spontaneous
  Country: GB (occurrence: GB)
  Receive Date: 20190524
  Receipt Date: 20190829
  Transmission Date: 20191004
  Serious: Yes (Other)
  Sender: FDA-Public Use
  Company Number: GB-TEVA-2019-GB-1046251

PATIENT
  Age: 47 Year
  Sex: Male

DRUGS (1)
  1. ESOMEPRAZOLE. [Suspect]
     Active Substance: ESOMEPRAZOLE MAGNESIUM
     Indication: GASTROOESOPHAGEAL REFLUX DISEASE
     Dosage: 80 MILLIGRAM DAILY; 80MG (2X40MG) TABLETS A DAY ORALLY
     Route: 048

REACTIONS (13)
  - Vitamin B12 deficiency [Not Recovered/Not Resolved]
  - Anaemia [Not Recovered/Not Resolved]
  - Depression [Not Recovered/Not Resolved]
  - Dyspepsia [Unknown]
  - Barrett^s oesophagus [Unknown]
  - Spinal cord disorder [Unknown]
  - Cerebral atrophy [Unknown]
  - Depressed mood [Not Recovered/Not Resolved]
  - Blood iron abnormal [Not Recovered/Not Resolved]
  - Gastric disorder [Not Recovered/Not Resolved]
  - Gastric polyps [Unknown]
  - Hiatus hernia [Unknown]
  - Dysphagia [Unknown]

NARRATIVE: CASE EVENT DATE: 201810
